FAERS Safety Report 17893981 (Version 1)
Quarter: 2020Q2

REPORT INFORMATION
  Report Type: Other
  Country: GR (occurrence: GR)
  Receive Date: 20200615
  Receipt Date: 20200615
  Transmission Date: 20200714
  Serious: Yes (Hospitalization)
  Sender: FDA-Public Use
  Company Number: GR-ORCHID HEALTHCARE-2085809

PATIENT
  Age: 13 Month
  Sex: Female

DRUGS (1)
  1. ARIPIPRAZOLE, TABLET [Suspect]
     Active Substance: ARIPIPRAZOLE
     Route: 065

REACTIONS (2)
  - Accidental exposure to product [Recovered/Resolved]
  - Encephalopathy [Recovered/Resolved]
